FAERS Safety Report 11893556 (Version 2)
Quarter: 2016Q1

REPORT INFORMATION
  Report Type: Spontaneous
  Country: OM (occurrence: OM)
  Receive Date: 20160106
  Receipt Date: 20160107
  Transmission Date: 20160526
  Serious: Yes (Death, Other)
  Sender: FDA-Public Use
  Company Number: PHHY2015OM172039

PATIENT
  Age: 6 Week
  Sex: Female

DRUGS (4)
  1. DEXAMETHASONE. [Suspect]
     Active Substance: DEXAMETHASONE
     Indication: LYMPHOHISTIOCYTOSIS
     Dosage: 10 MG/M2, QD
     Route: 065
  2. ETOPOSIDE. [Suspect]
     Active Substance: ETOPOSIDE
     Indication: LYMPHOHISTIOCYTOSIS
     Dosage: 150 MG/M2, UNK
     Route: 065
  3. PROPRANOLOL [Suspect]
     Active Substance: PROPRANOLOL\PROPRANOLOL HYDROCHLORIDE
     Indication: LYMPHOHISTIOCYTOSIS
     Dosage: 4 MG/KG, QD
     Route: 065
  4. CICLOSPORIN [Suspect]
     Active Substance: CYCLOSPORINE
     Indication: LYMPHOHISTIOCYTOSIS
     Dosage: 1.5 MG/KG, BID
     Route: 065

REACTIONS (5)
  - Lymphohistiocytosis [Fatal]
  - Drug ineffective [Fatal]
  - Hypertrophic cardiomyopathy [Unknown]
  - Hypertension [Unknown]
  - Disease recurrence [Fatal]
